FAERS Safety Report 19969165 (Version 2)
Quarter: 2021Q4

REPORT INFORMATION
  Report Type: Spontaneous
  Country: US (occurrence: US)
  Receive Date: 20211019
  Receipt Date: 20211104
  Transmission Date: 20220303
  Serious: Yes (Other)
  Sender: FDA-Public Use
  Company Number: US-MALLINCKRODT-T202104557

PATIENT
  Sex: Female
  Weight: 7 kg

DRUGS (5)
  1. H.P. ACTHAR [Suspect]
     Active Substance: CORTICOTROPIN
     Indication: Infantile spasms
     Dosage: 0.65 MILLILITER, QD
     Route: 030
     Dates: start: 202109, end: 2021
  2. H.P. ACTHAR [Suspect]
     Active Substance: CORTICOTROPIN
     Dosage: 0.5 MILLILITER, QD FOR 3 DAYS
     Route: 065
     Dates: start: 2021, end: 2021
  3. H.P. ACTHAR [Suspect]
     Active Substance: CORTICOTROPIN
     Dosage: 0.65 MILLILITER, QD FOR 3 DAYS
     Route: 065
     Dates: start: 2021, end: 2021
  4. H.P. ACTHAR [Suspect]
     Active Substance: CORTICOTROPIN
     Dosage: 0.2 MILLILITER, QD FOR 3 DAYS
     Route: 065
     Dates: start: 2021, end: 2021
  5. H.P. ACTHAR [Suspect]
     Active Substance: CORTICOTROPIN
     Dosage: 0.1 MILLILITER, QD FOR 3 DAYS
     Route: 065
     Dates: start: 2021, end: 2021

REACTIONS (11)
  - Haematochezia [Recovered/Resolved]
  - Infantile spasms [Unknown]
  - Condition aggravated [Unknown]
  - Crying [Unknown]
  - Stress [Unknown]
  - Abdominal pain upper [Not Recovered/Not Resolved]
  - Abdominal pain [Not Recovered/Not Resolved]
  - Dermatitis diaper [Not Recovered/Not Resolved]
  - Diarrhoea [Not Recovered/Not Resolved]
  - Anger [Not Recovered/Not Resolved]
  - Therapeutic product effect incomplete [Recovering/Resolving]

NARRATIVE: CASE EVENT DATE: 20210101
